FAERS Safety Report 10192293 (Version 6)
Quarter: 2014Q3

REPORT INFORMATION
  Report Type: Spontaneous
  Country: US (occurrence: US)
  Receive Date: 20140523
  Receipt Date: 20140723
  Transmission Date: 20150326
  Serious: Yes (Other)
  Sender: FDA-Public Use
  Company Number: CHPA2014US006873

PATIENT
  Age: 70 Year
  Sex: Female

DRUGS (3)
  1. LAMISIL [Suspect]
     Active Substance: TERBINAFINE HYDROCHLORIDE
     Indication: TINEA PEDIS
     Dosage: UNK UNK, BID
     Route: 061
     Dates: start: 2013
  2. LAMISIL [Suspect]
     Active Substance: TERBINAFINE HYDROCHLORIDE
     Dosage: UNK
     Route: 061
     Dates: start: 20140517
  3. LAMISIL [Suspect]
     Active Substance: TERBINAFINE HYDROCHLORIDE
     Dosage: UNK
     Route: 061
     Dates: end: 201405

REACTIONS (2)
  - Drug ineffective [Unknown]
  - Lymphoma [Recovering/Resolving]

NARRATIVE: CASE EVENT DATE: 201311
